FAERS Safety Report 6102629-1 (Version None)
Quarter: 2009Q1

REPORT INFORMATION
  Report Type: 
  Country: None (occurrence: None)
  Receive Date: 20090304
  Receipt Date: 20081022
  Transmission Date: 20090719
  Serious: No
  Sender: FDA-Public Use
  Company Number: A0753057A

PATIENT
  Sex: Female

DRUGS (8)
  1. REQUIP [Suspect]
     Indication: RESTLESS LEGS SYNDROME
     Dosage: 3MG PER DAY
     Route: 048
     Dates: start: 20080701
  2. ROPINIROLE [Suspect]
     Dosage: 3MG PER DAY
     Route: 048
     Dates: start: 20080801
  3. PROTONIX [Concomitant]
  4. COREG [Concomitant]
  5. ISOSORBIDE [Concomitant]
  6. WATER PILL [Concomitant]
  7. POTASSIUM CHLORIDE [Concomitant]
  8. HYDROCODONE COMPOUND [Concomitant]

REACTIONS (3)
  - ARTHRALGIA [None]
  - DRUG INEFFECTIVE [None]
  - VISION BLURRED [None]
